FAERS Safety Report 21222226 (Version 1)
Quarter: 2022Q3

REPORT INFORMATION
  Report Type: Spontaneous
  Country: US (occurrence: US)
  Receive Date: 20220817
  Receipt Date: 20220817
  Transmission Date: 20221026
  Serious: Yes (Other)
  Sender: FDA-Public Use
  Company Number: US-SPECGX-T202101858

PATIENT
  Sex: Male

DRUGS (1)
  1. ROXICODONE [Suspect]
     Active Substance: OXYCODONE HYDROCHLORIDE
     Indication: Product used for unknown indication
     Dosage: 30 MILLIGRAM
     Route: 065
     Dates: start: 2013

REACTIONS (5)
  - Drug dependence [Unknown]
  - Mood altered [Unknown]
  - Anxiety [Unknown]
  - Insomnia [Unknown]
  - Adverse event [Unknown]
